FAERS Safety Report 12841812 (Version 1)
Quarter: 2016Q4

REPORT INFORMATION
  Report Type: Spontaneous
  Country: US (occurrence: US)
  Receive Date: 20161012
  Receipt Date: 20161012
  Transmission Date: 20170207
  Serious: No
  Sender: FDA-Public Use
  Company Number: US-SEATTLE GENETICS-2016SGN00451

PATIENT
  Sex: Female

DRUGS (1)
  1. ADCETRIS [Suspect]
     Active Substance: BRENTUXIMAB VEDOTIN
     Indication: ANAPLASTIC LARGE CELL LYMPHOMA T- AND NULL-CELL TYPES
     Route: 065

REACTIONS (7)
  - Blood count abnormal [Unknown]
  - Nephrolithiasis [Unknown]
  - Nausea [Unknown]
  - Muscle spasticity [Unknown]
  - Memory impairment [Unknown]
  - Neutrophil count increased [Unknown]
  - Muscle spasms [Unknown]
